FAERS Safety Report 6314754-0 (Version None)
Quarter: 2009Q3

REPORT INFORMATION
  Report Type: 
  Country: None (occurrence: None)
  Receive Date: 20090819
  Receipt Date: 20090813
  Transmission Date: 20100115
  Serious: Yes (Hospitalization)
  Sender: FDA-Public Use
  Company Number: DE-BAYER-200928476GPV

PATIENT
  Age: 70 Year
  Sex: Male

DRUGS (4)
  1. SORAFENIB [Suspect]
     Indication: RENAL CELL CARCINOMA
     Dates: start: 20090323, end: 20090517
  2. BISOPROLOL [Concomitant]
     Dates: start: 20090403
  3. ALLOPURINOL [Concomitant]
  4. OXYCODON [Concomitant]
     Dates: start: 20090505

REACTIONS (1)
  - DEEP VEIN THROMBOSIS [None]
